FAERS Safety Report 23339074 (Version 1)
Quarter: 2023Q4

REPORT INFORMATION
  Report Type: Spontaneous
  Country: IT (occurrence: IT)
  Receive Date: 20231226
  Receipt Date: 20231226
  Transmission Date: 20240110
  Serious: Yes (Hospitalization, Other)
  Sender: FDA-Public Use
  Company Number: IT-AMGEN-ITASP2023226079

PATIENT
  Age: 51 Year
  Sex: Female

DRUGS (5)
  1. CARFILZOMIB [Suspect]
     Active Substance: CARFILZOMIB
     Indication: Plasma cell myeloma refractory
     Dosage: UNK UNK, CYCLICAL (8 CYCLES)
     Route: 065
  2. POMALIDOMIDE [Suspect]
     Active Substance: POMALIDOMIDE
     Indication: Plasma cell myeloma refractory
     Dosage: UNK UNK, CYCLICAL (8 CYCLES)
     Route: 065
  3. DEXAMETHASONE [Suspect]
     Active Substance: DEXAMETHASONE
     Indication: Plasma cell myeloma refractory
     Dosage: UNK UNK, CYCLICAL (8 CYCLES)
     Route: 065
  4. DARATUMUMAB [Suspect]
     Active Substance: DARATUMUMAB
     Indication: Plasma cell myeloma refractory
     Dosage: UNK
     Route: 065
  5. HUMAN IMMUNOGLOBULIN G [Concomitant]
     Active Substance: HUMAN IMMUNOGLOBULIN G
     Dosage: 400 MILLIGRAM/KILOGRAM, Q3WK
     Route: 042
     Dates: start: 2022, end: 202304

REACTIONS (12)
  - Cytokine release syndrome [Recovered/Resolved]
  - Breakthrough COVID-19 [Recovered/Resolved]
  - COVID-19 pneumonia [Recovered/Resolved]
  - Pulmonary embolism [Recovering/Resolving]
  - Bronchopulmonary aspergillosis [Recovered/Resolved]
  - Normocytic anaemia [Unknown]
  - Plasma cell myeloma refractory [Unknown]
  - B-cell aplasia [Unknown]
  - Respiratory failure [Recovering/Resolving]
  - Off label use [Unknown]
  - Lymphocyte count decreased [Unknown]
  - Natural killer cell count decreased [Unknown]

NARRATIVE: CASE EVENT DATE: 20200101
